FAERS Safety Report 8410712-0 (Version None)
Quarter: 2012Q2

REPORT INFORMATION
  Report Type: 
  Country: None (occurrence: None)
  Receive Date: 20120605
  Receipt Date: 20120523
  Transmission Date: 20120825
  Serious: Yes (Hospitalization, Other)
  Sender: FDA-Public Use
  Company Number: US-ELI_LILLY_AND_COMPANY-US201110004465

PATIENT
  Sex: Female

DRUGS (13)
  1. DIASTAT [Concomitant]
  2. AMBIEN [Concomitant]
  3. VIMPAT [Concomitant]
  4. FORTEO [Suspect]
     Dosage: 20 UG, QD
     Dates: start: 20120201
  5. FORTEO [Suspect]
     Indication: OSTEOPOROSIS
     Dosage: 20 UG, QD
     Route: 065
     Dates: end: 20110811
  6. LACTULOSE [Concomitant]
  7. ZONEGRAN [Concomitant]
     Indication: CONVULSION
  8. SEASONIQUE [Concomitant]
  9. LORAZEPAM [Concomitant]
  10. FORTEO [Suspect]
     Dosage: 20 UG, QD
     Dates: end: 20111201
  11. KEPPRA [Concomitant]
  12. ALENDRONATE SODIUM [Concomitant]
  13. VITAMIN D [Concomitant]

REACTIONS (6)
  - URINARY TRACT OBSTRUCTION [None]
  - CONVULSION [None]
  - RENAL TUBULAR DISORDER [None]
  - RENAL DISORDER [None]
  - NEPHROLITHIASIS [None]
  - URINARY RETENTION [None]
